FAERS Safety Report 21378875 (Version 1)
Quarter: 2022Q3

REPORT INFORMATION
  Report Type: Spontaneous
  Country: PT (occurrence: PT)
  Receive Date: 20220927
  Receipt Date: 20220927
  Transmission Date: 20221026
  Serious: Yes (Other)
  Sender: FDA-Public Use
  Company Number: PT-INFARMED-G202209-1038

PATIENT
  Age: 63 Year
  Sex: Female

DRUGS (1)
  1. AZITHROMYCIN ANHYDROUS [Suspect]
     Active Substance: AZITHROMYCIN ANHYDROUS
     Indication: Pharyngitis
     Dosage: 500 MILLIGRAM, ONCE A DAY (1ID - 3 DIAS)
     Route: 065
     Dates: start: 20210731

REACTIONS (3)
  - Vulvovaginal pruritus [Recovered/Resolved]
  - Tongue oedema [Recovered/Resolved]
  - Tongue discomfort [Recovered/Resolved]

NARRATIVE: CASE EVENT DATE: 20210731
